FAERS Safety Report 9060671 (Version 1)
Quarter: 2013Q1

REPORT INFORMATION
  Report Type: Spontaneous
  Country: JP (occurrence: JP)
  Receive Date: 20130204
  Receipt Date: 20130204
  Transmission Date: 20140127
  Serious: Yes (Other)
  Sender: FDA-Public Use
  Company Number: JP-MYLANLABS-2013S1001560

PATIENT
  Age: 47 Year
  Sex: Female

DRUGS (2)
  1. PACLITAXEL [Suspect]
     Indication: UTERINE CANCER
     Dosage: 175MG/M2 ON DAY1 WITH 3W INTERVAL BETWEEN COURSES
     Route: 041
  2. CISPLATIN [Suspect]
     Indication: UTERINE CANCER
     Dosage: 50MG/M2 ON DAY1 WITH 3W INTERVAL BETWEEN COURSES
     Route: 041

REACTIONS (5)
  - Oesophagitis [Unknown]
  - Nausea [Unknown]
  - Vomiting [Unknown]
  - Leukopenia [Unknown]
  - Septic shock [Unknown]
